FAERS Safety Report 8500741 (Version 4)
Quarter: 2012Q4

REPORT INFORMATION
  Report Type: Report from Study
  Country: US (occurrence: US)
  Receive Date: 20120410
  Receipt Date: 20121108
  Transmission Date: 20130627
  Serious: Yes (Death, Life-Threatening, Hospitalization)
  Sender: FDA-Public Use
  Company Number: US-BIOGENIDEC-2012BI010652

PATIENT
  Age: 68 Year
  Sex: Female
  Weight: 48 kg

DRUGS (33)
  1. TYSABRI [Suspect]
     Indication: MULTIPLE SCLEROSIS
     Route: 042
     Dates: start: 20090715, end: 20120221
  2. ALBUTEROL [Concomitant]
  3. ATROVENT [Concomitant]
  4. BACLOFEN [Concomitant]
  5. COREG [Concomitant]
  6. COREG [Concomitant]
     Route: 048
  7. KEPPRA [Concomitant]
  8. LASIX [Concomitant]
     Route: 048
  9. LYRICA [Concomitant]
  10. MULTIVITAMIN [Concomitant]
  11. PHENERGAN [Concomitant]
  12. VITAMIN B COMPLEX [Concomitant]
  13. VITAMIN D [Concomitant]
  14. VITAMIN C [Concomitant]
     Route: 048
  15. FERROUS SULFATE [Concomitant]
  16. XANAX [Concomitant]
  17. ZOLOFT [Concomitant]
  18. CYMBALTA [Concomitant]
  19. AMBIEN [Concomitant]
  20. AMBIEN [Concomitant]
  21. ZYPREXA [Concomitant]
  22. CALCIUM [Concomitant]
  23. MUCINEX [Concomitant]
  24. PROTONIX [Concomitant]
  25. KLOR-CON [Concomitant]
  26. ROBITUSSIN [Concomitant]
  27. NYSTATIN CREAM [Concomitant]
  28. ZINC CREAM [Concomitant]
  29. CALMOSEPTINE [Concomitant]
  30. IMODIUM [Concomitant]
     Indication: DIARRHOEA
  31. LAMOTRIGINE [Concomitant]
  32. LORTAB [Concomitant]
  33. LORTAB [Concomitant]

REACTIONS (7)
  - Respiratory failure [Fatal]
  - Cardiac failure congestive [Recovered/Resolved]
  - Pneumonia aspiration [Recovered/Resolved]
  - Urinary tract infection [Recovered/Resolved]
  - Pleural effusion [Recovered/Resolved]
  - Supraventricular tachycardia [Recovered/Resolved]
  - Mental status changes [Recovered/Resolved]
